FAERS Safety Report 7064854-5 (Version None)
Quarter: 2010Q4

REPORT INFORMATION
  Report Type: 
  Country: None (occurrence: None)
  Receive Date: 20101027
  Receipt Date: 19891107
  Transmission Date: 20110411
  Serious: Yes (Death)
  Sender: FDA-Public Use
  Company Number: US-ROCHE-890201049001

PATIENT
  Age: 54 Year
  Sex: Male
  Weight: 72.1 kg

DRUGS (2)
  1. INTERFERON ALFA-2A [Suspect]
     Route: 058
     Dates: start: 19891102, end: 19891106
  2. FLUOROURACIL [Suspect]
     Indication: PRODUCT USED FOR UNKNOWN INDICATION
     Route: 042
     Dates: start: 19891102

REACTIONS (8)
  - CARDIAC DISORDER [None]
  - DISSEMINATED INTRAVASCULAR COAGULATION [None]
  - HAEMORRHAGE [None]
  - MALIGNANT NEOPLASM PROGRESSION [None]
  - MOUTH ULCERATION [None]
  - PULMONARY EMBOLISM [None]
  - RASH [None]
  - RENAL NEOPLASM [None]
